FAERS Safety Report 7804651 (Version 3)
Quarter: 2013Q1

REPORT INFORMATION
  Report Type: Spontaneous
  Country: US (occurrence: US)
  Receive Date: 20110208
  Receipt Date: 20130325
  Transmission Date: 20140127
  Serious: Yes (Hospitalization, Other)
  Sender: FDA-Public Use
  Company Number: US-ASTRAZENECA-2011SE04740

PATIENT
  Age: 59 Year
  Sex: Male

DRUGS (4)
  1. SEROQUEL [Suspect]
     Indication: ANXIETY DISORDER
     Route: 048
     Dates: start: 2008
  2. SEROQUEL [Suspect]
     Indication: SLEEP DISORDER
     Route: 048
     Dates: start: 2008
  3. EFFEXOR [Concomitant]
  4. XANAX [Concomitant]

REACTIONS (6)
  - Poor peripheral circulation [Unknown]
  - Ankle fracture [Unknown]
  - Insomnia [Unknown]
  - Irritability [Unknown]
  - Off label use [Unknown]
  - Drug dose omission [Unknown]
